FAERS Safety Report 12690902 (Version 2)
Quarter: 2016Q3

REPORT INFORMATION
  Report Type: Spontaneous
  Country: TW (occurrence: TW)
  Receive Date: 20160826
  Receipt Date: 20160907
  Transmission Date: 20161109
  Serious: Yes (Hospitalization)
  Sender: FDA-Public Use
  Company Number: TW-ELI_LILLY_AND_COMPANY-TW201608010037

PATIENT
  Age: 87 Year
  Sex: Female

DRUGS (1)
  1. FORTEO [Suspect]
     Active Substance: TERIPARATIDE
     Indication: OSTEOPOROTIC FRACTURE
     Dosage: UNK, QD
     Route: 065
     Dates: start: 20160804, end: 20160805

REACTIONS (5)
  - Pyrexia [Unknown]
  - Altered state of consciousness [Unknown]
  - Muscular weakness [Unknown]
  - Discomfort [Unknown]
  - Tremor [Unknown]

NARRATIVE: CASE EVENT DATE: 201608
